FAERS Safety Report 4601409-3 (Version None)
Quarter: 2005Q1

REPORT INFORMATION
  Report Type: 
  Country: None (occurrence: None)
  Receive Date: 20050202
  Receipt Date: 20040618
  Transmission Date: 20050727
  Serious: Yes (Hospitalization)
  Sender: FDA-Public Use
  Company Number: 8006565

PATIENT
  Age: 65 Year
  Sex: Male
  Weight: 77.27 kg

DRUGS (12)
  1. KEPPRA [Suspect]
     Indication: POST LAMINECTOMY SYNDROME
     Dosage: 1500 MG 2/D PO
     Route: 048
     Dates: start: 20040603, end: 20040609
  2. KEPPRA [Suspect]
     Indication: POST LAMINECTOMY SYNDROME
     Dosage: 1000 MG 2/D PO
     Route: 048
     Dates: start: 20040614, end: 20040615
  3. KEPPRA [Suspect]
     Indication: POST LAMINECTOMY SYNDROME
     Dosage: 1500 MG 2/D PO
     Route: 048
     Dates: start: 20040616, end: 20040621
  4. MS CONTIN [Concomitant]
  5. SYNTHROID [Concomitant]
  6. METOPROLOL [Concomitant]
  7. PROTONIX [Concomitant]
  8. ASPIRIN [Concomitant]
  9. ISOSORB [Concomitant]
  10. LIPITOR [Concomitant]
  11. LISINOPRIL [Concomitant]
  12. FLEXERIL [Concomitant]

REACTIONS (1)
  - CHEST PAIN [None]
